FAERS Safety Report 21910047 (Version 3)
Quarter: 2023Q4

REPORT INFORMATION
  Report Type: Spontaneous
  Country: US (occurrence: US)
  Receive Date: 20230125
  Receipt Date: 20231106
  Transmission Date: 20240110
  Serious: Yes (Other)
  Sender: FDA-Public Use
  Company Number: US-JNJFOC-20230148337

PATIENT
  Age: 2 Year
  Sex: Male
  Weight: 4.55 kg

DRUGS (8)
  1. TYLENOL REGULAR STRENGTH [Suspect]
     Active Substance: ACETAMINOPHEN
     Indication: Headache
     Route: 064
     Dates: start: 200807, end: 200904
  2. TYLENOL REGULAR STRENGTH [Suspect]
     Active Substance: ACETAMINOPHEN
     Indication: Back pain
  3. TYLENOL EXTRA STRENGTH [Suspect]
     Active Substance: ACETAMINOPHEN
     Indication: Headache
     Route: 064
     Dates: start: 200701, end: 200710
  4. TYLENOL EXTRA STRENGTH [Suspect]
     Active Substance: ACETAMINOPHEN
     Indication: Back pain
     Dosage: 3-6 TIMES PER WEEK, FIRST, SECOND AND THIRD DIAGNOSIS
     Route: 064
     Dates: start: 200807, end: 200904
  5. EQUATE ANTACID [Concomitant]
     Active Substance: CALCIUM CARBONATE
     Indication: Morning sickness
     Dosage: 1000MG
     Route: 064
     Dates: start: 200811, end: 200904
  6. TUMS [Concomitant]
     Active Substance: CALCIUM CARBONATE
     Indication: Morning sickness
     Route: 064
  7. TUMS [Concomitant]
     Active Substance: CALCIUM CARBONATE
     Indication: Back pain
  8. PAXIL [Concomitant]
     Active Substance: PAROXETINE HYDROCHLORIDE
     Indication: Anxiety
     Route: 064

REACTIONS (2)
  - Autism spectrum disorder [Unknown]
  - Foetal exposure during pregnancy [Unknown]

NARRATIVE: CASE EVENT DATE: 20110607
